FAERS Safety Report 14676053 (Version 1)
Quarter: 2018Q1

REPORT INFORMATION
  Report Type: Spontaneous
  Country: US (occurrence: RO)
  Receive Date: 20180323
  Receipt Date: 20180323
  Transmission Date: 20180509
  Serious: Yes (Hospitalization)
  Sender: FDA-Public Use
  Company Number: RO-TEVA-2018-RO-871573

PATIENT
  Age: 49 Year
  Sex: Female
  Weight: 85.1 kg

DRUGS (6)
  1. PACLITAXEL. [Suspect]
     Active Substance: PACLITAXEL
     Indication: LUNG NEOPLASM MALIGNANT
     Route: 042
     Dates: start: 20160930
  2. PF-06439535 [Suspect]
     Active Substance: INVESTIGATIONAL BIOSIMILARS
     Indication: LUNG NEOPLASM MALIGNANT
     Route: 042
     Dates: start: 20160930
  3. GRANISETRON [Concomitant]
     Active Substance: GRANISETRON
     Indication: NAUSEA
     Route: 065
     Dates: start: 20161002
  4. CARBOPLATIN. [Suspect]
     Active Substance: CARBOPLATIN
     Indication: LUNG NEOPLASM MALIGNANT
     Route: 042
     Dates: start: 20160930
  5. PARACETAMOL [Concomitant]
     Active Substance: ACETAMINOPHEN
     Indication: PYREXIA
     Route: 065
     Dates: start: 20161010
  6. FERROUS AMINOPROPANE DICARBOXYLATE [Concomitant]
     Indication: ANAEMIA
     Route: 065
     Dates: start: 20160930

REACTIONS (1)
  - Febrile neutropenia [Recovered/Resolved]

NARRATIVE: CASE EVENT DATE: 20161013
